FAERS Safety Report 8964448 (Version 1)
Quarter: 2012Q4

REPORT INFORMATION
  Report Type: 
  Country: US (occurrence: US)
  Receive Date: 20121214
  Receipt Date: 20121214
  Transmission Date: 20130627
  Serious: No
  Sender: FDA-Public Use
  Company Number: US-GLAXOSMITHKLINE-A0991808A

PATIENT
  Age: 55 Year
  Sex: Male

DRUGS (2)
  1. AVODART [Suspect]
     Indication: PROSTATIC HAEMORRHAGE
     Dosage: 1CAP Per day
     Route: 048
     Dates: start: 20120412
  2. LIPITOR [Concomitant]

REACTIONS (3)
  - Haematospermia [Unknown]
  - Blood urine present [Unknown]
  - Condition aggravated [Unknown]
